FAERS Safety Report 8874929 (Version 1)
Quarter: 2012Q4

REPORT INFORMATION
  Report Type: 
  Country: US (occurrence: US)
  Receive Date: 20121026
  Receipt Date: 20121026
  Transmission Date: 20130627
  Serious: No
  Sender: FDA-Public Use
  Company Number: US-AMGEN-USASP2012042292

PATIENT
  Age: 36 Year

DRUGS (1)
  1. ENBREL [Suspect]
     Indication: ANKYLOSING SPONDYLITIS
     Dosage: 50 mg, qwk
     Route: 058
     Dates: start: 201206

REACTIONS (4)
  - Sneezing [Recovered/Resolved]
  - Nasal discomfort [Unknown]
  - Injection site rash [Not Recovered/Not Resolved]
  - Injection site papule [Not Recovered/Not Resolved]
